FAERS Safety Report 25279807 (Version 1)
Quarter: 2025Q2

REPORT INFORMATION
  Report Type: Spontaneous
  Country: US (occurrence: US)
  Receive Date: 20250507
  Receipt Date: 20250507
  Transmission Date: 20250716
  Serious: No
  Sender: BIOMARIN
  Company Number: US-BIOMARINAP-US-2025-165690

PATIENT

DRUGS (1)
  1. PALYNZIQ [Suspect]
     Active Substance: PEGVALIASE-PQPZ
     Indication: Phenylketonuria
     Route: 058
     Dates: start: 202504

REACTIONS (4)
  - Asthenia [Unknown]
  - Oropharyngeal pain [Unknown]
  - Headache [Unknown]
  - Arthralgia [Unknown]
